FAERS Safety Report 4404236-5 (Version None)
Quarter: 2004Q3

REPORT INFORMATION
  Report Type: 
  Country: None (occurrence: None)
  Receive Date: 20040721
  Receipt Date: 20040721
  Transmission Date: 20050211
  Serious: Yes (Hospitalization)
  Sender: FDA-Public Use
  Company Number: None

PATIENT
  Age: 78 Year
  Sex: Male
  Weight: 71.4 kg

DRUGS (8)
  1. COUMADIN [Suspect]
     Indication: ATRIAL FIBRILLATION
     Dosage: 7.5 MG ORAL
     Route: 048
  2. RANITIDINE [Concomitant]
  3. SIMVASTATIN [Concomitant]
  4. CARVEDILOL [Concomitant]
  5. AMLODIPINE BESYLATE [Concomitant]
  6. SYNTHROID [Concomitant]
  7. HYDROCORTISONE [Concomitant]
  8. ISOSORBIDE DINITRATE [Concomitant]

REACTIONS (2)
  - EPISTAXIS [None]
  - INTERNATIONAL NORMALISED RATIO INCREASED [None]
